FAERS Safety Report 9379916 (Version 6)
Quarter: 2013Q3

REPORT INFORMATION
  Report Type: Spontaneous
  Country: US (occurrence: US)
  Receive Date: 20130702
  Receipt Date: 20130812
  Transmission Date: 20140515
  Serious: Yes (Hospitalization, Disabling)
  Sender: FDA-Public Use
  Company Number: US-JNJFOC-20130619589

PATIENT
  Sex: Female

DRUGS (2)
  1. XARELTO [Suspect]
     Indication: PERIPHERAL ARTERY ANGIOPLASTY
     Route: 048
  2. XARELTO [Suspect]
     Indication: ANGIOPATHY
     Route: 048

REACTIONS (2)
  - Haemorrhage intracranial [Recovering/Resolving]
  - Asthenia [Recovering/Resolving]
